FAERS Safety Report 18269489 (Version 1)
Quarter: 2020Q3

REPORT INFORMATION
  Report Type: Spontaneous
  Country: FR (occurrence: FR)
  Receive Date: 20200915
  Receipt Date: 20200915
  Transmission Date: 20201103
  Serious: Yes (Other)
  Sender: FDA-Public Use
  Company Number: FR-PFIZER INC-2020352328

PATIENT
  Age: 74 Year
  Sex: Female

DRUGS (1)
  1. ZOLEDRONIC ACID [Suspect]
     Active Substance: ZOLEDRONIC ACID
     Indication: OSTEOPOROSIS
     Dosage: UNK
     Route: 051
     Dates: start: 201908

REACTIONS (10)
  - Diarrhoea [Unknown]
  - Off label use [Unknown]
  - Gait disturbance [Unknown]
  - Fatigue [Unknown]
  - Product use in unapproved indication [Unknown]
  - Pain [Unknown]
  - Abdominal pain [Unknown]
  - Tooth disorder [Unknown]
  - Gingivitis [Unknown]
  - Pain in jaw [Unknown]

NARRATIVE: CASE EVENT DATE: 201908
